FAERS Safety Report 17226070 (Version 1)
Quarter: 2020Q1

REPORT INFORMATION
  Report Type: Spontaneous
  Country: US (occurrence: US)
  Receive Date: 20200102
  Receipt Date: 20200102
  Transmission Date: 20200409
  Serious: No
  Sender: FDA-Public Use
  Company Number: US-009507513-1912USA012206

PATIENT
  Age: 54 Year
  Sex: Female

DRUGS (7)
  1. AMOXICILLIN (+) CLAVULANATE POTASSIUM [Concomitant]
     Active Substance: AMOXICILLIN\CLAVULANATE POTASSIUM
     Indication: WOUND DEHISCENCE
  2. PREDNISONE. [Concomitant]
     Active Substance: PREDNISONE
     Indication: VOCAL CORD POLYP
     Route: 048
  3. CEPHALEXIN. [Concomitant]
     Active Substance: CEPHALEXIN
     Indication: INCISION SITE COMPLICATION
  4. AMOXICILLIN (+) CLAVULANATE POTASSIUM [Concomitant]
     Active Substance: AMOXICILLIN\CLAVULANATE POTASSIUM
     Indication: PURULENT DISCHARGE
  5. ITRACONAZOLE. [Concomitant]
     Active Substance: ITRACONAZOLE
     Indication: BLASTOMYCOSIS
     Dosage: 200 MILLIGRAM, TWICE DAILY
     Route: 048
  6. NOXAFIL [Suspect]
     Active Substance: POSACONAZOLE
     Indication: BLASTOMYCOSIS
     Dosage: 300 MILLIGRAM, DAY
     Route: 048
  7. CLINDAMYCIN. [Concomitant]
     Active Substance: CLINDAMYCIN
     Indication: VOCAL CORD POLYP

REACTIONS (1)
  - Product use in unapproved indication [Unknown]
